FAERS Safety Report 23769555 (Version 2)
Quarter: 2024Q3

REPORT INFORMATION
  Report Type: Spontaneous
  Country: US (occurrence: US)
  Receive Date: 20240422
  Receipt Date: 20240723
  Transmission Date: 20241017
  Serious: Yes (Other)
  Sender: ABBVIE
  Company Number: US-ABBVIE-5725887

PATIENT
  Sex: Female
  Weight: 50 kg

DRUGS (1)
  1. LUMIGAN [Suspect]
     Active Substance: BIMATOPROST
     Indication: Glaucoma
     Dosage: FORM STRENGTH: 0.3MG/ML
     Route: 047
     Dates: start: 2021

REACTIONS (19)
  - Renal failure [Unknown]
  - Taste disorder [Unknown]
  - Renal disorder [Unknown]
  - Flatulence [Unknown]
  - Eye pain [Not Recovered/Not Resolved]
  - Parosmia [Unknown]
  - Pain in extremity [Unknown]
  - Dyspepsia [Unknown]
  - Hypoaesthesia [Unknown]
  - Skin fissures [Not Recovered/Not Resolved]
  - Seizure [Unknown]
  - Gastrointestinal disorder [Unknown]
  - Pruritus [Unknown]
  - Hair disorder [Unknown]
  - Skin odour abnormal [Unknown]
  - Ear disorder [Unknown]
  - Onychoclasis [Unknown]
  - Scoliosis [Unknown]
  - Intervertebral disc degeneration [Unknown]

NARRATIVE: CASE EVENT DATE: 20220101
